FAERS Safety Report 9144353 (Version 3)
Quarter: 2013Q2

REPORT INFORMATION
  Report Type: Spontaneous
  Country: JP (occurrence: JP)
  Receive Date: 20130306
  Receipt Date: 20130528
  Transmission Date: 20140414
  Serious: Yes (Other)
  Sender: FDA-Public Use
  Company Number: JP-ROCHE-1197586

PATIENT
  Age: 77 Year
  Sex: Male

DRUGS (4)
  1. LUCENTIS [Suspect]
     Indication: AGE-RELATED MACULAR DEGENERATION
     Route: 050
     Dates: start: 20120809, end: 20120809
  2. LUCENTIS [Suspect]
     Route: 050
     Dates: start: 20120906, end: 20120906
  3. LUCENTIS [Suspect]
     Route: 050
     Dates: start: 20121011, end: 20121011
  4. GATIFLO [Concomitant]
     Route: 065
     Dates: start: 201208, end: 201210

REACTIONS (3)
  - Polymyositis [Recovering/Resolving]
  - Fatigue [Unknown]
  - Malaise [Recovered/Resolved]
